FAERS Safety Report 9300358 (Version 1)
Quarter: 2013Q2

REPORT INFORMATION
  Report Type: Spontaneous
  Country: US (occurrence: US)
  Receive Date: 20130521
  Receipt Date: 20130521
  Transmission Date: 20140414
  Serious: Yes (Other)
  Sender: FDA-Public Use
  Company Number: US-JNJFOC-20130508361

PATIENT
  Sex: Male

DRUGS (5)
  1. REMICADE [Suspect]
     Indication: ANKYLOSING SPONDYLITIS
     Route: 042
     Dates: start: 2007
  2. OMEPRAZOLE [Concomitant]
     Route: 065
  3. ALLEGRA [Concomitant]
     Route: 065
  4. LOVASTATIN [Concomitant]
     Route: 065
  5. STRATTERA [Concomitant]
     Route: 065

REACTIONS (1)
  - Rotator cuff syndrome [Recovered/Resolved]
